FAERS Safety Report 24113122 (Version 1)
Quarter: 2024Q3

REPORT INFORMATION
  Report Type: Report from Study
  Country: MX (occurrence: MX)
  Receive Date: 20240719
  Receipt Date: 20240719
  Transmission Date: 20241016
  Serious: Yes (Death)
  Sender: ABBVIE
  Company Number: MX-ABBVIE-5845111

PATIENT
  Sex: Female

DRUGS (1)
  1. VENCLEXTA [Suspect]
     Active Substance: VENETOCLAX
     Indication: Chronic lymphocytic leukaemia
     Dosage: STRENGTH 100 MG
     Route: 048
     Dates: start: 20230822, end: 202406

REACTIONS (1)
  - Death [Fatal]

NARRATIVE: CASE EVENT DATE: 20240101
